FAERS Safety Report 5089640-7 (Version None)
Quarter: 2006Q3

REPORT INFORMATION
  Report Type: 
  Country: None (occurrence: None)
  Receive Date: 20060822
  Receipt Date: 20060807
  Transmission Date: 20061208
  Serious: Yes (Death)
  Sender: FDA-Public Use
  Company Number: US200604002283

PATIENT
  Age: 79 Year
  Sex: Female
  Weight: 68 kg

DRUGS (2)
  1. ZYPREXA [Suspect]
     Indication: DEMENTIA
     Dosage: SEE IMAGE
     Dates: start: 20010823, end: 20011030
  2. ZYPREXA [Suspect]
     Indication: DEMENTIA
     Dosage: SEE IMAGE
     Dates: start: 20011030, end: 20020205

REACTIONS (1)
  - DIABETES MELLITUS NON-INSULIN-DEPENDENT [None]
